FAERS Safety Report 11936694 (Version 3)
Quarter: 2017Q3

REPORT INFORMATION
  Report Type: Report from Study
  Country: None (occurrence: BR)
  Receive Date: 20160121
  Receipt Date: 20170926
  Transmission Date: 20171127
  Serious: Yes (Hospitalization, Other)
  Sender: FDA-Public Use
  Company Number: BR-ABBVIE-16K-020-1539870-00

PATIENT
  Age: 46 Year
  Sex: Female
  Weight: 52 kg

DRUGS (8)
  1. PREDNISONE. [Concomitant]
     Active Substance: PREDNISONE
     Indication: RHEUMATOID ARTHRITIS
     Route: 048
     Dates: start: 2005
  2. AAS [Concomitant]
     Active Substance: ASPIRIN
     Indication: ANTICOAGULANT THERAPY
  3. METHOTREXATE. [Concomitant]
     Active Substance: METHOTREXATE
     Indication: RHEUMATOID ARTHRITIS
     Route: 048
     Dates: start: 2005
  4. ATLANSIL [Concomitant]
     Active Substance: AMIODARONE
     Indication: ARRHYTHMIA
     Route: 048
     Dates: start: 2002
  5. HUMIRA [Suspect]
     Active Substance: ADALIMUMAB
     Route: 058
  6. AAS [Concomitant]
     Active Substance: ASPIRIN
     Indication: CARDIAC DISORDER
     Route: 048
     Dates: start: 2002
  7. HUMIRA [Suspect]
     Active Substance: ADALIMUMAB
     Indication: RHEUMATOID ARTHRITIS
     Route: 058
     Dates: start: 20130801
  8. PANTOPRAZOLE [Concomitant]
     Active Substance: PANTOPRAZOLE
     Indication: GASTRIC DISORDER
     Route: 048

REACTIONS (16)
  - Venous occlusion [Unknown]
  - Cardiac disorder [Unknown]
  - Leiomyoma [Unknown]
  - Diabetes mellitus [Not Recovered/Not Resolved]
  - Haemorrhage [Recovered/Resolved]
  - Chest pain [Not Recovered/Not Resolved]
  - Fatigue [Recovered/Resolved]
  - Blood cholesterol abnormal [Unknown]
  - Chest pain [Recovered/Resolved]
  - Weight decreased [Unknown]
  - Angina pectoris [Not Recovered/Not Resolved]
  - Infarction [Recovering/Resolving]
  - Infarction [Not Recovered/Not Resolved]
  - Fatigue [Not Recovered/Not Resolved]
  - Dizziness [Not Recovered/Not Resolved]
  - Gastrooesophageal reflux disease [Recovered/Resolved]

NARRATIVE: CASE EVENT DATE: 2013
